FAERS Safety Report 9224487 (Version 1)
Quarter: 2013Q1

REPORT INFORMATION
  Report Type: Spontaneous
  Country: US (occurrence: None)
  Receive Date: 20120914
  Receipt Date: 20120914
  Transmission Date: 20140127
  Serious: Yes (Other)
  Sender: FDA-Public Use
  Company Number: JPI-P-022736

PATIENT
  Age: 65 Year
  Sex: Male

DRUGS (4)
  1. XYREM(500 MILLIGRAM/MILLILITERS, SOLUTION)(SODIUM OXYBATE) [Suspect]
     Indication: NARCOLEPSY
     Dosage: (1.5 GM, 2 IN 1 D)
     Route: 048
     Dates: start: 20100603
  2. ST. JOHN^S WORT [Suspect]
     Indication: PRODUCT USED FOR UNKNOWN INDICATION
  3. 20 TO 30 SUPPLEMENTS [Concomitant]
  4. RED YEAST RICE [Concomitant]

REACTIONS (1)
  - Blood pressure increased [None]
